FAERS Safety Report 25816332 (Version 2)
Quarter: 2025Q3

REPORT INFORMATION
  Report Type: Report from Study
  Country: US (occurrence: US)
  Receive Date: 20250918
  Receipt Date: 20250922
  Transmission Date: 20251021
  Serious: Yes (Hospitalization, Other)
  Sender: ABBVIE
  Company Number: US-ABBVIE-6464600

PATIENT
  Age: 74 Year
  Sex: Female

DRUGS (2)
  1. VYALEV [Suspect]
     Active Substance: FOSCARBIDOPA\FOSLEVODOPA
     Indication: Parkinson^s disease
     Route: 058
     Dates: start: 20250910
  2. VYALEV [Suspect]
     Active Substance: FOSCARBIDOPA\FOSLEVODOPA
     Route: 058
     Dates: start: 20250807

REACTIONS (4)
  - Upper limb fracture [Unknown]
  - Hallucination [Recovering/Resolving]
  - Rhabdomyolysis [Recovering/Resolving]
  - Renal tubular acidosis [Unknown]

NARRATIVE: CASE EVENT DATE: 20250901
